FAERS Safety Report 18060408 (Version 2)
Quarter: 2021Q1

REPORT INFORMATION
  Report Type: Spontaneous
  Country: US (occurrence: US)
  Receive Date: 20200723
  Receipt Date: 20210316
  Transmission Date: 20210419
  Serious: Yes (Other)
  Sender: FDA-Public Use
  Company Number: US-GLAXOSMITHKLINE-US2020139148

PATIENT
  Sex: Male

DRUGS (29)
  1. ZANTAC [Suspect]
     Active Substance: RANITIDINE HYDROCHLORIDE
     Indication: ABDOMINAL DISCOMFORT
     Dosage: UNKNOWN AT THIS TIME, TRIED A ONCE OR TWICE
     Route: 065
     Dates: start: 200401, end: 201812
  2. ZANTAC [Suspect]
     Active Substance: RANITIDINE HYDROCHLORIDE
     Dosage: 150 MG, QD
     Route: 065
     Dates: start: 200401, end: 201812
  3. ZANTAC [Suspect]
     Active Substance: RANITIDINE HYDROCHLORIDE
  4. ZANTAC [Suspect]
     Active Substance: RANITIDINE HYDROCHLORIDE
     Indication: ABDOMINAL DISCOMFORT
     Dosage: 75 MG BOTH
     Route: 065
     Dates: start: 200401, end: 201812
  5. RANITIDINE CAPSULE [Suspect]
     Active Substance: RANITIDINE
     Dosage: 150 MG BOTH
     Route: 065
     Dates: start: 200401, end: 201812
  6. RANITIDINE. [Suspect]
     Active Substance: RANITIDINE
     Indication: ABDOMINAL DISCOMFORT
     Dosage: UNKNOWN AT THIS TIME PRESCRIPTION
     Route: 065
     Dates: start: 200401
  7. RANITIDINE. [Suspect]
     Active Substance: RANITIDINE
     Dosage: 150 MG, QD
     Route: 065
     Dates: start: 200401, end: 201812
  8. RANITIDINE HYDROCHLORIDE. [Concomitant]
     Active Substance: RANITIDINE HYDROCHLORIDE
     Indication: ABDOMINAL DISCOMFORT
     Dosage: DOES NOT RECALL PRESCRIPTION
     Route: 065
     Dates: start: 200401, end: 201812
  9. ZANTAC [Suspect]
     Active Substance: RANITIDINE HYDROCHLORIDE
     Dosage: 150 MG, QD
     Route: 065
     Dates: start: 200401, end: 201812
  10. ZANTAC [Suspect]
     Active Substance: RANITIDINE HYDROCHLORIDE
     Indication: ABDOMINAL DISCOMFORT
     Dosage: 75 MG BOTH
     Route: 065
     Dates: start: 200401, end: 201812
  11. RANITIDINE HYDROCHLORIDE. [Concomitant]
     Active Substance: RANITIDINE HYDROCHLORIDE
     Dosage: UNK
  12. RANITIDINE HYDROCHLORIDE. [Concomitant]
     Active Substance: RANITIDINE HYDROCHLORIDE
     Dosage: UNK
  13. ZANTAC [Suspect]
     Active Substance: RANITIDINE HYDROCHLORIDE
     Dosage: 150 MG, QD
     Route: 065
     Dates: start: 200401, end: 201812
  14. RANITIDINE CAPSULE [Suspect]
     Active Substance: RANITIDINE
     Indication: ABDOMINAL DISCOMFORT
     Dosage: 75 MG BOTH
     Route: 065
     Dates: start: 200401, end: 201812
  15. RANITIDINE CAPSULE [Suspect]
     Active Substance: RANITIDINE
     Dosage: 150 MG, QD
     Route: 065
     Dates: start: 200401, end: 201812
  16. RANITIDINE. [Suspect]
     Active Substance: RANITIDINE
     Dosage: UNK
  17. RANITIDINE. [Suspect]
     Active Substance: RANITIDINE
     Indication: ABDOMINAL DISCOMFORT
     Dosage: 75 MG BOTH
     Route: 065
     Dates: start: 200401, end: 201812
  18. RANITIDINE. [Suspect]
     Active Substance: RANITIDINE
     Dosage: 150 MG, QD
     Route: 065
     Dates: start: 200401, end: 201812
  19. RANITIDINE. [Suspect]
     Active Substance: RANITIDINE
  20. RANITIDINE HCI [Suspect]
     Active Substance: RANITIDINE HYDROCHLORIDE
  21. RANITIDINE. [Suspect]
     Active Substance: RANITIDINE
     Dosage: UNK
  22. RANITIDINE. [Suspect]
     Active Substance: RANITIDINE
     Indication: ABDOMINAL DISCOMFORT
     Dosage: 75 MG BOTH
     Route: 065
     Dates: start: 200401, end: 201812
  23. RANITIDINE. [Suspect]
     Active Substance: RANITIDINE
     Indication: ABDOMINAL DISCOMFORT
     Dosage: 75 MG BOTH
     Route: 065
     Dates: start: 200401, end: 201812
  24. RANITIDINE. [Suspect]
     Active Substance: RANITIDINE
     Dosage: UNK
  25. RANITIDINE. [Suspect]
     Active Substance: RANITIDINE
     Dosage: 150 MG, QD
     Route: 065
     Dates: start: 200401, end: 201812
  26. RANITIDINE. [Suspect]
     Active Substance: RANITIDINE
     Dosage: UNK
  27. ZANTAC [Suspect]
     Active Substance: RANITIDINE HYDROCHLORIDE
  28. ZANTAC [Suspect]
     Active Substance: RANITIDINE HYDROCHLORIDE
     Indication: ABDOMINAL DISCOMFORT
     Dosage: 75 MG BOTH
     Route: 065
     Dates: start: 200401, end: 201812
  29. RANITIDINE. [Suspect]
     Active Substance: RANITIDINE
     Dosage: UNK

REACTIONS (1)
  - Prostate cancer [Unknown]
